FAERS Safety Report 5569375-4 (Version None)
Quarter: 2007Q4

REPORT INFORMATION
  Report Type: 
  Country: None (occurrence: None)
  Receive Date: 20071220
  Receipt Date: 20071220
  Transmission Date: 20080405
  Serious: Yes (Hospitalization, Other)
  Sender: FDA-Public Use
  Company Number: PHHO2006NO06728

PATIENT
  Age: 60 Year
  Sex: Female
  Weight: 66 kg

DRUGS (14)
  1. ZOLEDRONIC ACID [Suspect]
     Indication: OSTEOPOROTIC FRACTURE
     Dosage: DOUBLE-BLIND
     Route: 042
     Dates: start: 20051020
  2. CALCIUM CARBONATE [Concomitant]
  3. VITAMIN D [Concomitant]
  4. AMARYL [Concomitant]
  5. GLUCOPHAGE [Concomitant]
  6. RENITEC [Concomitant]
     Indication: HYPERTENSION
  7. ZOCOR [Concomitant]
     Indication: HYPERLIPIDAEMIA
  8. NITROGLYCERIN [Concomitant]
     Indication: ANGINA PECTORIS
  9. ALBYL-E [Concomitant]
  10. ZYRTEC [Concomitant]
     Indication: HYPERSENSITIVITY
  11. PULMICORT [Concomitant]
     Indication: HYPERSENSITIVITY
  12. VENTOLIN [Concomitant]
     Indication: HYPERSENSITIVITY
  13. LOMUDAL NASAL [Concomitant]
     Indication: HYPERSENSITIVITY
  14. OPATANOL [Concomitant]
     Indication: HYPERSENSITIVITY

REACTIONS (2)
  - ARTHRALGIA [None]
  - SURGERY [None]
